FAERS Safety Report 5018718-9 (Version None)
Quarter: 2006Q2

REPORT INFORMATION
  Report Type: 
  Country: None (occurrence: None)
  Receive Date: 20060606
  Receipt Date: 20031023
  Transmission Date: 20061013
  Serious: Yes (Hospitalization)
  Sender: FDA-Public Use
  Company Number: CH-ROCHE-432713

PATIENT
  Age: 62 Year
  Sex: Male
  Weight: 92 kg

DRUGS (8)
  1. PEG-INTERFERON ALFA 2A (RO 25-8310) [Suspect]
     Route: 058
     Dates: start: 20030327, end: 20030519
  2. RIBAVIRIN [Suspect]
     Route: 048
     Dates: start: 20030327, end: 20030519
  3. CYCLOSPORINE [Suspect]
     Indication: DRUG USE FOR UNKNOWN INDICATION
     Route: 065
     Dates: start: 20000915, end: 20030520
  4. MYCOPHENOLATE MOFETIL [Suspect]
     Indication: DRUG USE FOR UNKNOWN INDICATION
     Route: 065
     Dates: start: 20000915, end: 20030520
  5. RAMIPRIL [Concomitant]
     Dates: start: 20000927
  6. METOPROLOL [Concomitant]
     Dates: start: 20001016
  7. CALCIUM CARBONATE [Concomitant]
     Dates: start: 20000915
  8. INSULIN MIXTARD 30 HM [Concomitant]
     Dates: start: 20011019

REACTIONS (2)
  - FASCIITIS [None]
  - PANCYTOPENIA [None]
